FAERS Safety Report 4305821-1 (Version None)
Quarter: 2004Q1

REPORT INFORMATION
  Report Type: 
  Country: None (occurrence: None)
  Receive Date: 20040226
  Receipt Date: 20040226
  Transmission Date: 20041129
  Serious: Yes (Life-Threatening, Hospitalization)
  Sender: FDA-Public Use
  Company Number: None

PATIENT
  Age: 63 Year
  Sex: Female
  Weight: 53 kg

DRUGS (11)
  1. ATORVASTATIN [Suspect]
  2. COLACE [Concomitant]
  3. CLONIDINE [Concomitant]
  4. CLOPIDOGREL BISULFATE [Concomitant]
  5. DILTIAZEM [Concomitant]
  6. ACETAMINOPHEN [Concomitant]
  7. FOLIC ACID [Concomitant]
  8. MILK OF MAGNESIA TAB [Concomitant]
  9. K-DUR 10 [Concomitant]
  10. FUROSEMIDE [Concomitant]
  11. ATORVASTATIN [Concomitant]

REACTIONS (11)
  - CARDIO-RESPIRATORY ARREST [None]
  - COUGH [None]
  - DYSPNOEA [None]
  - GENERAL PHYSICAL HEALTH DETERIORATION [None]
  - HAEMODIALYSIS [None]
  - HYPOXIA [None]
  - MULTI-ORGAN FAILURE [None]
  - PYREXIA [None]
  - RENAL FAILURE ACUTE [None]
  - RESPIRATORY TRACT CONGESTION [None]
  - RHABDOMYOLYSIS [None]
